FAERS Safety Report 7464812-2 (Version None)
Quarter: 2011Q2

REPORT INFORMATION
  Report Type: 
  Country: None (occurrence: None)
  Receive Date: 20110509
  Receipt Date: 20110427
  Transmission Date: 20111010
  Serious: Yes (Disabling)
  Sender: FDA-Public Use
  Company Number: GB-BAYER-2011-037542

PATIENT
  Age: 53 Year
  Sex: Female
  Weight: 80 kg

DRUGS (1)
  1. MIRENA [Suspect]
     Dosage: UNK UNK, CONT
     Route: 015
     Dates: start: 20100101, end: 20110101

REACTIONS (3)
  - VISUAL IMPAIRMENT [None]
  - EYE IRRITATION [None]
  - DRY EYE [None]
